FAERS Safety Report 7541690-4 (Version None)
Quarter: 2011Q2

REPORT INFORMATION
  Report Type: 
  Country: None (occurrence: None)
  Receive Date: 20110613
  Receipt Date: 20110531
  Transmission Date: 20111010
  Serious: Yes (Other)
  Sender: FDA-Public Use
  Company Number: US-JNJFOC-20110602924

PATIENT
  Age: 58 Year
  Sex: Female

DRUGS (5)
  1. GEMCITABINE [Suspect]
     Indication: OVARIAN EPITHELIAL CANCER
     Route: 065
  2. PACLITAXEL [Suspect]
     Indication: OVARIAN EPITHELIAL CANCER
     Route: 065
  3. DOXORUBICIN HYDROCHLORIDE [Suspect]
     Indication: OVARIAN EPITHELIAL CANCER
     Route: 042
  4. CARBOPLATIN [Suspect]
     Indication: OVARIAN EPITHELIAL CANCER
     Route: 065
  5. BEVACIZUMAB [Suspect]
     Indication: OVARIAN EPITHELIAL CANCER
     Route: 065

REACTIONS (3)
  - HYPERTENSION [None]
  - RENAL FAILURE CHRONIC [None]
  - OVARIAN CANCER [None]
